FAERS Safety Report 21382242 (Version 1)
Quarter: 2022Q3

REPORT INFORMATION
  Report Type: Spontaneous
  Country: US (occurrence: None)
  Receive Date: 20220926
  Receipt Date: 20220926
  Transmission Date: 20221026
  Serious: Yes (Hospitalization)
  Sender: FDA-Public Use
  Company Number: None

PATIENT
  Age: 75 Year
  Sex: Female

DRUGS (2)
  1. INGREZZA [Suspect]
     Active Substance: VALBENAZINE
     Indication: Tardive dyskinesia
     Dosage: FREQUENCY : DAILY;?
     Route: 048
     Dates: start: 20220310, end: 20220829
  2. INGREZZA [Concomitant]
     Active Substance: VALBENAZINE
     Dates: start: 20220310, end: 20220829

REACTIONS (6)
  - Parkinsonism [None]
  - Weight decreased [None]
  - Dry skin [None]
  - Hair texture abnormal [None]
  - Bedridden [None]
  - Urinary incontinence [None]

NARRATIVE: CASE EVENT DATE: 20220826
